FAERS Safety Report 12060726 (Version 3)
Quarter: 2017Q4

REPORT INFORMATION
  Report Type: Spontaneous
  Country: BE (occurrence: BE)
  Receive Date: 20160210
  Receipt Date: 20171219
  Transmission Date: 20180320
  Serious: Yes (Hospitalization)
  Sender: FDA-Public Use
  Company Number: BE-OTSUKA-2016_003055

PATIENT
  Age: 28 Year
  Sex: Male

DRUGS (3)
  1. ABILIFY MAINTENA [Suspect]
     Active Substance: ARIPIPRAZOLE
     Indication: SCHIZOPHRENIA
     Dosage: 400 MG, UNK
     Route: 030
     Dates: start: 201510
  2. ABILIFY [Suspect]
     Active Substance: ARIPIPRAZOLE
     Indication: PRODUCT USED FOR UNKNOWN INDICATION
     Dosage: UNK
     Route: 065
  3. ABILIFY MAINTENA [Suspect]
     Active Substance: ARIPIPRAZOLE
     Dosage: 600 MG, UNK
     Route: 030
     Dates: start: 20160201

REACTIONS (7)
  - Sedation [Not Recovered/Not Resolved]
  - Drug monitoring procedure incorrectly performed [Unknown]
  - Hospitalisation [Not Recovered/Not Resolved]
  - Off label use [Unknown]
  - Prescribed overdose [Unknown]
  - Drug ineffective [Unknown]
  - Feeling abnormal [Not Recovered/Not Resolved]

NARRATIVE: CASE EVENT DATE: 20160201
